FAERS Safety Report 14768775 (Version 1)
Quarter: 2018Q2

REPORT INFORMATION
  Report Type: Spontaneous
  Country: US (occurrence: US)
  Receive Date: 20180417
  Receipt Date: 20180417
  Transmission Date: 20180711
  Serious: Yes (Other)
  Sender: FDA-Public Use
  Company Number: US-JNJFOC-20180405762

PATIENT
  Age: 7 Decade
  Sex: Female

DRUGS (7)
  1. METOPROLOL. [Concomitant]
     Active Substance: METOPROLOL
     Indication: HYPERTENSION
     Route: 065
  2. IRBESARTAN. [Concomitant]
     Active Substance: IRBESARTAN
     Indication: HYPERTENSION
     Route: 065
  3. TYLENOL 8 HR ARTHRITIS PAIN [Suspect]
     Active Substance: ACETAMINOPHEN
     Indication: LIGAMENT SPRAIN
     Dosage: EVERY DAY, AT LEAST ONCE A DAY OR AT LEAST TWO A DAY
     Route: 065
  4. TYLENOL 8 HR ARTHRITIS PAIN [Suspect]
     Active Substance: ACETAMINOPHEN
     Indication: CROHN^S DISEASE
     Dosage: EVERY DAY, AT LEAST ONCE A DAY OR AT LEAST TWO A DAY
     Route: 065
  5. HUMIRA [Suspect]
     Active Substance: ADALIMUMAB
     Indication: CROHN^S DISEASE
     Dosage: 40 MG, EVERY 14 DAYS
     Route: 065
  6. TYLENOL 8 HR ARTHRITIS PAIN [Suspect]
     Active Substance: ACETAMINOPHEN
     Indication: CROHN^S DISEASE
     Dosage: EVERY 8 HOURS, NO MORE THAN 3 TIMES A DAY
     Route: 065
     Dates: start: 20180301, end: 20180328
  7. TYLENOL 8 HR ARTHRITIS PAIN [Suspect]
     Active Substance: ACETAMINOPHEN
     Indication: LIGAMENT SPRAIN
     Dosage: EVERY 8 HOURS, NO MORE THAN 3 TIMES A DAY
     Route: 065
     Dates: start: 20180301, end: 20180328

REACTIONS (4)
  - Off label use [Unknown]
  - Product use in unapproved indication [Unknown]
  - Faeces discoloured [Recovered/Resolved]
  - Haematochezia [Recovered/Resolved]

NARRATIVE: CASE EVENT DATE: 20180325
